FAERS Safety Report 16327632 (Version 1)
Quarter: 2019Q2

REPORT INFORMATION
  Report Type: Spontaneous
  Country: FR (occurrence: FR)
  Receive Date: 20190517
  Receipt Date: 20190517
  Transmission Date: 20190711
  Serious: Yes (Death)
  Sender: FDA-Public Use
  Company Number: FR-TEVA-2019-FR-1050671

PATIENT
  Age: 33 Year
  Sex: Female

DRUGS (2)
  1. METHADONE [Suspect]
     Active Substance: METHADONE HYDROCHLORIDE
     Route: 065
  2. CHLORHYDRATE DE TRAMADOL [Suspect]
     Active Substance: TRAMADOL HYDROCHLORIDE
     Route: 065

REACTIONS (1)
  - Death [Fatal]
